FAERS Safety Report 4653223-0 (Version None)
Quarter: 2005Q2

REPORT INFORMATION
  Report Type: 
  Country: None (occurrence: None)
  Receive Date: 20050503
  Receipt Date: 20050420
  Transmission Date: 20051028
  Serious: Yes (Other)
  Sender: FDA-Public Use
  Company Number: 2005062639

PATIENT
  Age: 46 Year
  Sex: Male
  Weight: 86 kg

DRUGS (4)
  1. FRAGMIN [Suspect]
     Indication: ILL-DEFINED DISORDER
     Dosage: 5000 I.U. (5000 I.U., 1 IN 1D), SUBCUTANEOUS
     Route: 058
     Dates: start: 20050129, end: 20050203
  2. ACETAMINOPHEN [Suspect]
     Indication: ILL-DEFINED DISORDER
     Dosage: 4000 MG (500 MG, 8 IN 1 D, ORAL
     Route: 048
     Dates: start: 20050129, end: 20050203
  3. CLAVULIN (AMOXICILLIN TRIHYDRATE, CLAVULANATE POTASSIUM) [Suspect]
     Indication: PNEUMONIA BACTERIAL
     Dosage: 6 GRAM (2 GRAM, 3 IN 1D) INTRAVENOUS
     Route: 042
     Dates: start: 20050129, end: 20050131
  4. CLARITHROMYCIN [Suspect]
     Indication: PNEUMONIA BACTERIAL
     Dosage: 1500 MG (500 MG, 3 IN 1 D), ORAL
     Route: 048
     Dates: start: 20050129, end: 20050203

REACTIONS (2)
  - HEPATIC TRAUMA [None]
  - TRANSAMINASES INCREASED [None]
